FAERS Safety Report 13962816 (Version 1)
Quarter: 2017Q3

REPORT INFORMATION
  Report Type: Spontaneous
  Country: US (occurrence: US)
  Receive Date: 20170913
  Receipt Date: 20170913
  Transmission Date: 20171128
  Serious: Yes (Hospitalization, Other)
  Sender: FDA-Public Use
  Company Number: US-MACLEODS PHARMACEUTICALS US LTD-MAC2017005861

PATIENT

DRUGS (2)
  1. QUETIAPINE. [Suspect]
     Active Substance: QUETIAPINE
     Indication: BIPOLAR DISORDER
     Dosage: 500 MG, QD
     Route: 048
  2. QUETIAPINE. [Suspect]
     Active Substance: QUETIAPINE
     Dosage: 600 MG, QD
     Route: 048

REACTIONS (8)
  - Condition aggravated [Recovering/Resolving]
  - Drug-induced liver injury [Recovering/Resolving]
  - Hyperbilirubinaemia [Recovering/Resolving]
  - Scleral discolouration [Recovering/Resolving]
  - Jaundice [Recovering/Resolving]
  - Cholelithiasis [Recovering/Resolving]
  - Yellow skin [Recovering/Resolving]
  - Chromaturia [Recovering/Resolving]
